FAERS Safety Report 7568575-1 (Version None)
Quarter: 2011Q2

REPORT INFORMATION
  Report Type: 
  Country: None (occurrence: None)
  Receive Date: 20110623
  Receipt Date: 20110621
  Transmission Date: 20111010
  Serious: Yes (Hospitalization, Other)
  Sender: FDA-Public Use
  Company Number: AU-AMGEN-AUSSP2011018155

PATIENT
  Sex: Male

DRUGS (2)
  1. IMMUNE GLOBULIN NOS [Concomitant]
     Dosage: UNK
  2. NPLATE [Suspect]
     Indication: THROMBOCYTOPENIA
     Dosage: 2 UNK, UNK
     Dates: start: 20100715

REACTIONS (4)
  - ARTHRITIS BACTERIAL [None]
  - THERAPEUTIC RESPONSE DECREASED [None]
  - POST PROCEDURAL HAEMORRHAGE [None]
  - THROMBOCYTOPENIA [None]
